FAERS Safety Report 21914879 (Version 3)
Quarter: 2023Q1

REPORT INFORMATION
  Report Type: Other
  Country: NG (occurrence: None)
  Receive Date: 20230126
  Receipt Date: 20230209
  Transmission Date: 20230418
  Serious: Yes (Death, Hospitalization)
  Sender: FDA-Public Use
  Company Number: NG-ROCHE-3270655

PATIENT
  Age: 50 Year
  Sex: Female
  Weight: 58 kg

DRUGS (3)
  1. HERCEPTIN [Suspect]
     Active Substance: TRASTUZUMAB
     Indication: HER2 positive breast cancer
     Route: 058
     Dates: start: 20210920, end: 20220906
  2. VITAMIN B COMPLEX [Concomitant]
     Active Substance: CYANOCOBALAMIN\DEXPANTHENOL\NIACINAMIDE\PYRIDOXINE HYDROCHLORIDE\RIBOFLAVIN 5^-PHOSPHATE SODIUM\THIA
  3. FILGRASTIM [Concomitant]
     Active Substance: FILGRASTIM

REACTIONS (4)
  - Radiation injury [Fatal]
  - Coma [Fatal]
  - Radiation injury [Fatal]
  - Bone pain [Fatal]
